FAERS Safety Report 5874523-2 (Version None)
Quarter: 2008Q3

REPORT INFORMATION
  Report Type: 
  Country: None (occurrence: None)
  Receive Date: 20080909
  Receipt Date: 20080831
  Transmission Date: 20090109
  Serious: Yes (Other)
  Sender: FDA-Public Use
  Company Number: PHHY2008GB20291

PATIENT
  Sex: Male

DRUGS (1)
  1. CLOZARIL [Suspect]
     Indication: SCHIZOPHRENIA
     Dosage: 300 MG MANE, 350 MG NOCTE
     Route: 048
     Dates: start: 20080520

REACTIONS (6)
  - ANXIETY [None]
  - BLOOD PRESSURE FLUCTUATION [None]
  - GASTRIC DISORDER [None]
  - HEART RATE IRREGULAR [None]
  - MUSCULOSKELETAL CHEST PAIN [None]
  - SINUS TACHYCARDIA [None]
